FAERS Safety Report 22159364 (Version 1)
Quarter: 2023Q1

REPORT INFORMATION
  Report Type: Spontaneous
  Country: CL (occurrence: CL)
  Receive Date: 20230331
  Receipt Date: 20230331
  Transmission Date: 20230417
  Serious: No
  Sender: FDA-Public Use
  Company Number: CL-ALKEM LABORATORIES LIMITED-CL-ALKEM-2023-01551

PATIENT
  Age: 3 Year
  Sex: Female

DRUGS (1)
  1. SIROLIMUS [Suspect]
     Active Substance: SIROLIMUS
     Indication: PIK3CA related overgrowth spectrum
     Dosage: 0.6 MILLIGRAM, EVERY 12 HOURS (EQUIVALENT TO 0.8 MG/SQUARE METRE /DOSE
     Route: 048

REACTIONS (1)
  - Hypertriglyceridaemia [Recovered/Resolved]
